FAERS Safety Report 22168093 (Version 16)
Quarter: 2025Q1

REPORT INFORMATION
  Report Type: Spontaneous
  Country: CO (occurrence: CO)
  Receive Date: 20230403
  Receipt Date: 20250108
  Transmission Date: 20250409
  Serious: Yes (Hospitalization, Other)
  Sender: BIOMARIN
  Company Number: CO-SA-SAC20220727001163

PATIENT

DRUGS (23)
  1. LARONIDASE [Suspect]
     Active Substance: LARONIDASE
     Indication: Mucopolysaccharidosis I
     Dosage: 28 MG (10 DF (VIALS)), QW
     Route: 042
     Dates: start: 20080117, end: 20240223
  2. LARONIDASE [Suspect]
     Active Substance: LARONIDASE
     Route: 042
     Dates: start: 2024, end: 2024
  3. LAMOTRIGINE [Concomitant]
     Active Substance: LAMOTRIGINE
     Indication: Eye disorder
  4. ENALAPRIL [Concomitant]
     Active Substance: ENALAPRIL
     Indication: Cardiac murmur
     Dosage: 5 MG, BID
  5. ENALAPRIL [Concomitant]
     Active Substance: ENALAPRIL
  6. Lotesol [Concomitant]
     Indication: Product used for unknown indication
     Dosage: SINGLE DROP AT NIGHT (RIGHT EYE) QD
  7. Lotesol [Concomitant]
  8. Lotesol [Concomitant]
  9. Lotesol [Concomitant]
  10. Freegen [Concomitant]
     Indication: Eye lubrication therapy
     Dosage: 5 MG 1 DOSE EVERY 6 HOUR
  11. LUMIGAN [Concomitant]
     Active Substance: BIMATOPROST
     Indication: Product used for unknown indication
     Dosage: ONE DROPS EVERY NIGHT
  12. GLAUCOMED [Concomitant]
     Indication: Glaucoma
     Dosage: 3 DF, TID
  13. GLAUCOMED [Concomitant]
     Indication: Intraocular pressure increased
  14. GLAUCOMED [Concomitant]
     Indication: Glaucoma
     Dosage: 3 DF, QD
  15. GLAUCOMED [Concomitant]
     Indication: Glare
     Dosage: 3 TABLETS DAILY
  16. GLAUCOMED [Concomitant]
     Indication: Ocular discomfort
     Dosage: 1 DF, QD
  17. GLAUCOMED [Concomitant]
  18. GLAUCOMED [Concomitant]
  19. TRIUMEQ [Concomitant]
     Active Substance: ABACAVIR SULFATE\DOLUTEGRAVIR SODIUM\LAMIVUDINE
     Indication: HIV infection
     Dosage: UNK UNK, QD (7PM)
     Route: 065
  20. ABACAVIR [Concomitant]
     Active Substance: ABACAVIR
     Indication: HIV infection
     Dosage: 1 DF, QD 7 PM.
  21. DOLUTEGRAVIR [Concomitant]
     Active Substance: DOLUTEGRAVIR
     Indication: HIV infection
     Dosage: 1 DF, QD 7 PM.
  22. LAMIVUDINE [Concomitant]
     Active Substance: LAMIVUDINE
     Indication: HIV infection
     Dosage: 1 DF, QD 7 PM.
  23. BRIMONIDINE TARTRATE\DORZOLAMIDE HYDROCHLORIDE\TIMOLOL MALEATE [Concomitant]
     Active Substance: BRIMONIDINE TARTRATE\DORZOLAMIDE HYDROCHLORIDE\TIMOLOL MALEATE
     Indication: Product used for unknown indication
     Dosage: 3 TIMES A DAY

REACTIONS (21)
  - HIV infection [Recovering/Resolving]
  - Glaucoma [Not Recovered/Not Resolved]
  - Cataract [Recovering/Resolving]
  - Vision blurred [Recovered/Resolved]
  - Uveitis [Not Recovered/Not Resolved]
  - Optic neuritis [Not Recovered/Not Resolved]
  - Blindness [Not Recovered/Not Resolved]
  - Eye pain [Recovered/Resolved]
  - Eye haemorrhage [Not Recovered/Not Resolved]
  - Intraocular pressure increased [Recovering/Resolving]
  - Inflammation [Recovered/Resolved]
  - Corneal opacity [Recovered/Resolved]
  - Headache [Not Recovered/Not Resolved]
  - Sleep disorder due to a general medical condition [Recovered/Resolved]
  - Conjunctivitis [Recovered/Resolved]
  - Glare [Unknown]
  - Ocular hyperaemia [Recovering/Resolving]
  - Eye swelling [Recovering/Resolving]
  - Visual impairment [Recovering/Resolving]
  - Sinusitis [Recovering/Resolving]
  - Inappropriate schedule of product administration [Unknown]

NARRATIVE: CASE EVENT DATE: 20180101
